FAERS Safety Report 15323050 (Version 1)
Quarter: 2018Q3

REPORT INFORMATION
  Report Type: Spontaneous
  Country: GR (occurrence: GR)
  Receive Date: 20180827
  Receipt Date: 20180827
  Transmission Date: 20181010
  Serious: Yes (Hospitalization)
  Sender: FDA-Public Use
  Company Number: GR-TAKEDA-2018TEU005143

PATIENT
  Age: 65 Year
  Sex: Female

DRUGS (1)
  1. VIPDOMET [Suspect]
     Active Substance: ALOGLIPTIN BENZOATE\METFORMIN HYDROCHLORIDE
     Indication: DIABETES MELLITUS
     Dosage: 12.5 MG, UNK
     Route: 065

REACTIONS (6)
  - Hyperhidrosis [Unknown]
  - Body temperature decreased [Unknown]
  - Discomfort [Unknown]
  - Fatigue [Unknown]
  - Myalgia [Unknown]
  - Renal pain [Unknown]
